FAERS Safety Report 7973226-8 (Version None)
Quarter: 2011Q4

REPORT INFORMATION
  Report Type: 
  Country: None (occurrence: None)
  Receive Date: 20111213
  Receipt Date: 20111205
  Transmission Date: 20120403
  Serious: Yes (Other)
  Sender: FDA-Public Use
  Company Number: PHEH2011US011199

PATIENT
  Sex: Male
  Weight: 145 kg

DRUGS (1)
  1. DIOVAN [Suspect]
     Dosage: 160 MG, BID
     Route: 048

REACTIONS (8)
  - BACK PAIN [None]
  - BONE NEOPLASM [None]
  - NECK PAIN [None]
  - SKIN ODOUR ABNORMAL [None]
  - CHOKING [None]
  - MUSCULAR WEAKNESS [None]
  - BLOOD GLUCOSE INCREASED [None]
  - HYPOAESTHESIA [None]
